FAERS Safety Report 7997897-5 (Version None)
Quarter: 2011Q4

REPORT INFORMATION
  Report Type: 
  Country: None (occurrence: None)
  Receive Date: 20111221
  Receipt Date: 20110328
  Transmission Date: 20120403
  Serious: Yes (Other)
  Sender: FDA-Public Use
  Company Number: US-PFIZER INC-K201100361

PATIENT
  Age: 3 Year
  Sex: Male
  Weight: 18.141 kg

DRUGS (1)
  1. EPIPEN [Suspect]
     Dosage: 0.3 MG, SINGLE
     Dates: start: 20110327, end: 20110327

REACTIONS (3)
  - ACCIDENTAL EXPOSURE [None]
  - PALLOR [None]
  - HEART RATE INCREASED [None]
